FAERS Safety Report 20438824 (Version 1)
Quarter: 2022Q1

REPORT INFORMATION
  Report Type: Other
  Country: JP (occurrence: None)
  Receive Date: 20220207
  Receipt Date: 20220207
  Transmission Date: 20220424
  Serious: Yes (Other)
  Sender: FDA-Public Use
  Company Number: JP-ROCHE-3015935

PATIENT

DRUGS (4)
  1. ATEZOLIZUMAB [Suspect]
     Active Substance: ATEZOLIZUMAB
     Indication: Non-small cell lung cancer
     Dosage: 1200 MG/BODY, DAY 1
     Route: 065
  2. CARBOPLATIN [Suspect]
     Active Substance: CARBOPLATIN
     Indication: Non-small cell lung cancer
     Route: 065
  3. PACLITAXEL [Suspect]
     Active Substance: PACLITAXEL
     Indication: Non-small cell lung cancer
     Dosage: DAYS 1, 8, 15
     Route: 065
  4. PEMBROLIZUMAB [Suspect]
     Active Substance: PEMBROLIZUMAB
     Indication: Non-small cell lung cancer
     Dosage: 200 MG/BODY, DAY 1
     Route: 065

REACTIONS (11)
  - Neutropenia [Unknown]
  - Renal impairment [Unknown]
  - Thrombosis [Unknown]
  - Infection [Unknown]
  - Thrombocytopenia [Unknown]
  - Decreased appetite [Unknown]
  - Anaemia [Unknown]
  - Oesophagitis [Unknown]
  - Fatigue [Unknown]
  - Hepatic function abnormal [Unknown]
  - Neuropathy peripheral [Unknown]
